FAERS Safety Report 4467394-2 (Version None)
Quarter: 2004Q4

REPORT INFORMATION
  Report Type: 
  Country: None (occurrence: None)
  Receive Date: 20041006
  Receipt Date: 20040929
  Transmission Date: 20050328
  Serious: Yes (Other)
  Sender: FDA-Public Use
  Company Number: PHBS2004JP12944

PATIENT
  Age: 16 Year
  Sex: Female
  Weight: 56 kg

DRUGS (8)
  1. TEGRETOL [Suspect]
     Indication: EPILEPSY
     Dosage: 450 MG/DAY
     Route: 065
  2. VALPROATE SODIUM [Suspect]
     Indication: EPILEPSY
     Dosage: 1 G/DAY
     Route: 065
  3. THIAMYLAL SODIUM [Suspect]
     Indication: GENERAL ANAESTHESIA
     Route: 065
  4. SEVOFLURANE [Suspect]
     Indication: GENERAL ANAESTHESIA
     Route: 065
  5. FENTANYL [Suspect]
     Indication: GENERAL ANAESTHESIA
     Route: 065
  6. ZONISAMIDE [Concomitant]
     Indication: EPILEPSY
     Dosage: 190 MG/DAY
     Route: 065
  7. CLOBAZAM [Concomitant]
     Indication: EPILEPSY
     Dosage: 20 MG/DAY
     Route: 065
  8. MIDAZOLAM HCL [Concomitant]
     Indication: ANAESTHETIC PREMEDICATION
     Dosage: 20 MG/DAY
     Route: 030

REACTIONS (1)
  - DELAYED RECOVERY FROM ANAESTHESIA [None]
